FAERS Safety Report 5756931-3 (Version None)
Quarter: 2008Q2

REPORT INFORMATION
  Report Type: 
  Country: None (occurrence: None)
  Receive Date: 20080603
  Receipt Date: 20080525
  Transmission Date: 20081010
  Serious: Yes (Hospitalization, Other)
  Sender: FDA-Public Use
  Company Number: IL-AMGEN-UK280567

PATIENT
  Sex: Female
  Weight: 68 kg

DRUGS (12)
  1. ARANESP [Suspect]
     Indication: RENAL FAILURE CHRONIC
     Route: 042
     Dates: start: 20050801, end: 20080504
  2. ACTRAPID HUMAN [Concomitant]
     Route: 058
  3. FUSIDIC ACID [Concomitant]
  4. FOLIC ACID [Concomitant]
     Route: 048
  5. VENOFER [Concomitant]
     Route: 042
  6. TUMS [Concomitant]
  7. LERCANIDIPINE [Concomitant]
     Route: 048
  8. LANTUS [Concomitant]
     Route: 058
  9. FUROSEMIDE [Concomitant]
     Route: 048
  10. CALCIUM CARBONATE [Concomitant]
     Route: 048
  11. SEVELAMER HCL [Concomitant]
     Route: 048
  12. SIMVASTATIN [Concomitant]
     Route: 048

REACTIONS (2)
  - ANAEMIA [None]
  - BONE MARROW FAILURE [None]
